FAERS Safety Report 23563072 (Version 15)
Quarter: 2025Q3

REPORT INFORMATION
  Report Type: Spontaneous
  Country: US (occurrence: US)
  Receive Date: 20240226
  Receipt Date: 20250820
  Transmission Date: 20251021
  Serious: Yes (Hospitalization)
  Sender: SANOFI AVENTIS
  Company Number: US-SA-SAC20240111000351

PATIENT
  Age: 39 Year
  Sex: Female

DRUGS (15)
  1. DUPIXENT [Suspect]
     Active Substance: DUPILUMAB
     Indication: Nasal polyps
     Dosage: 300 MG, QOW
     Route: 058
     Dates: start: 202307
  2. DUPIXENT [Suspect]
     Active Substance: DUPILUMAB
     Indication: Immunodeficiency common variable
  3. DUPIXENT [Suspect]
     Active Substance: DUPILUMAB
     Indication: Riley-Day syndrome
  4. PRIVIGEN [Suspect]
     Active Substance: HUMAN IMMUNOGLOBULIN G
     Indication: Immunodeficiency common variable
  5. METHYLPREDNISOLONE HEMISUCCINATE [Concomitant]
     Active Substance: METHYLPREDNISOLONE HEMISUCCINATE
  6. DIPHENHYDRAMINE [Concomitant]
     Active Substance: DIPHENHYDRAMINE
  7. HEPARIN [Concomitant]
     Active Substance: HEPARIN SODIUM
  8. DEXTROSE [Concomitant]
     Active Substance: DEXTROSE MONOHYDRATE
  9. CATHFLO ACTIVASE [Concomitant]
     Active Substance: ALTEPLASE
  10. SODIUM CHLORIDE [Concomitant]
     Active Substance: SODIUM CHLORIDE
  11. BACTERIOSTATIC WATER [Concomitant]
     Active Substance: WATER
  12. STERILE WATER [Concomitant]
     Active Substance: WATER
  13. ACETAMINOPHEN [Concomitant]
     Active Substance: ACETAMINOPHEN
  14. EPINEPHRINE [Concomitant]
     Active Substance: EPINEPHRINE
  15. DOXYCYCLINE [Concomitant]
     Active Substance: DOXYCYCLINE

REACTIONS (13)
  - Hospitalisation [Unknown]
  - Illness [Unknown]
  - Infection [Unknown]
  - Pain [Unknown]
  - Infusion related reaction [Unknown]
  - Bronchitis [Unknown]
  - Headache [Unknown]
  - Sinusitis [Unknown]
  - Pruritus [Unknown]
  - Nasal polyps [Unknown]
  - Condition aggravated [Unknown]
  - Product use in unapproved indication [Unknown]
  - Drug ineffective [Unknown]

NARRATIVE: CASE EVENT DATE: 20230701
